FAERS Safety Report 5119113-4 (Version None)
Quarter: 2006Q3

REPORT INFORMATION
  Report Type: 
  Country: None (occurrence: None)
  Receive Date: 20060925
  Receipt Date: 20060919
  Transmission Date: 20061208
  Serious: Yes (Hospitalization, Other)
  Sender: FDA-Public Use
  Company Number: FRWYE954419SEP06

PATIENT
  Age: 59 Year
  Sex: Female

DRUGS (6)
  1. TAZOCILLINE (PIPERACILLIN/TAZOBACTAM, INJECTION) [Suspect]
     Indication: PNEUMONIA BACTERIAL
     Dosage: INTRAVENOUS
     Route: 042
     Dates: start: 20060628, end: 20060628
  2. TOBRAMYCIN SULFATE [Concomitant]
  3. SEREVENT [Concomitant]
  4. RABEPRAZOLE SODIUM [Concomitant]
  5. SPIRIVA [Concomitant]
  6. TRAMADOL HCL [Concomitant]

REACTIONS (1)
  - DRUG HYPERSENSITIVITY [None]
